FAERS Safety Report 6609734-1 (Version None)
Quarter: 2010Q1

REPORT INFORMATION
  Report Type: 
  Country: None (occurrence: None)
  Receive Date: 20100302
  Receipt Date: 20100222
  Transmission Date: 20100710
  Serious: Yes (Other)
  Sender: FDA-Public Use
  Company Number: US-SANOFI-AVENTIS-2010SA010705

PATIENT
  Age: 70 Year
  Sex: Male
  Weight: 72.57 kg

DRUGS (5)
  1. LANTUS [Suspect]
     Indication: TYPE 1 DIABETES MELLITUS
     Dosage: DOSE:25 UNIT(S)
     Route: 058
     Dates: start: 20070101
  2. OPTICLICK [Suspect]
     Dates: start: 20070101
  3. LISINOPRIL [Concomitant]
  4. LOPRESSOR [Concomitant]
  5. DRONEDARONE [Concomitant]

REACTIONS (1)
  - NEOPLASM MALIGNANT [None]
